FAERS Safety Report 5509675-7 (Version None)
Quarter: 2007Q4

REPORT INFORMATION
  Report Type: 
  Country: None (occurrence: None)
  Receive Date: 20071107
  Receipt Date: 20071107
  Transmission Date: 20080405
  Serious: Yes (Hospitalization)
  Sender: FDA-Public Use
  Company Number: None

PATIENT
  Sex: Male
  Weight: 87.9978 kg

DRUGS (2)
  1. INDOMETHACIN 25MG CAP [Suspect]
     Indication: GOUT
     Dosage: 50MG TID PRN PAIN PO
     Route: 048
     Dates: start: 19960101
  2. INDOMETHACIN 25MG CAP [Suspect]
     Indication: PAIN
     Dosage: 50MG TID PRN PAIN PO
     Route: 048
     Dates: start: 19960101

REACTIONS (4)
  - BLOOD PRESSURE DECREASED [None]
  - DIZZINESS [None]
  - GASTRIC ULCER [None]
  - UPPER GASTROINTESTINAL HAEMORRHAGE [None]
